FAERS Safety Report 8603647-1 (Version None)
Quarter: 2012Q3

REPORT INFORMATION
  Report Type: 
  Country: None (occurrence: None)
  Receive Date: 20120817
  Receipt Date: 20120808
  Transmission Date: 20120928
  Serious: No
  Sender: FDA-Public Use
  Company Number: US-ASTRAZENECA-2012SE55934

PATIENT
  Age: 72 Year
  Sex: Male

DRUGS (1)
  1. CAPRELSA [Suspect]
     Indication: THYROID CANCER
     Route: 048

REACTIONS (4)
  - DIARRHOEA [None]
  - HYPERTENSION [None]
  - DRY MOUTH [None]
  - INSOMNIA [None]
